FAERS Safety Report 9769188 (Version 1)
Quarter: 2013Q3

REPORT INFORMATION
  Report Type: Spontaneous
  Country: US (occurrence: None)
  Receive Date: 20130904
  Receipt Date: 20130904
  Transmission Date: 20140515
  Serious: Yes (Death, Other)
  Sender: FDA-Public Use
  Company Number: ADR-2013-01496

PATIENT
  Sex: Male

DRUGS (4)
  1. BACLOFEN [Suspect]
     Indication: CANCER PAIN
  2. DILAUDID [Suspect]
  3. BUPIVACAINE [Suspect]
  4. CLONIDINE [Suspect]

REACTIONS (2)
  - Condition aggravated [None]
  - Metastatic squamous cell carcinoma [None]
